FAERS Safety Report 11783396 (Version 2)
Quarter: 2015Q4

REPORT INFORMATION
  Report Type: Spontaneous
  Country: US (occurrence: US)
  Receive Date: 20151127
  Receipt Date: 20151217
  Transmission Date: 20160305
  Serious: No
  Sender: FDA-Public Use
  Company Number: US-009507513-1511USA010858

PATIENT
  Age: 24 Year
  Sex: Female

DRUGS (2)
  1. NICODERM CQ [Concomitant]
     Active Substance: NICOTINE
  2. NEXPLANON [Suspect]
     Active Substance: ETONOGESTREL
     Indication: CONTRACEPTION
     Dosage: UNK
     Route: 059
     Dates: start: 20151109

REACTIONS (3)
  - Implant site swelling [Unknown]
  - Implant site pruritus [Unknown]
  - Implant site erythema [Unknown]

NARRATIVE: CASE EVENT DATE: 20151116
